FAERS Safety Report 9142978 (Version 3)
Quarter: 2013Q3

REPORT INFORMATION
  Report Type: Spontaneous
  Country: US (occurrence: US)
  Receive Date: 20130306
  Receipt Date: 20130712
  Transmission Date: 20140515
  Serious: No
  Sender: FDA-Public Use
  Company Number: US-PFIZER INC-2013074905

PATIENT
  Age: 61 Year
  Sex: Male
  Weight: 117.91 kg

DRUGS (2)
  1. SUTENT [Suspect]
     Indication: METASTATIC RENAL CELL CARCINOMA
     Dosage: 50 MG, UNK
     Dates: start: 20120716
  2. SUTENT [Suspect]
     Indication: RENAL CANCER
     Dosage: 37.5 MG, 28 DAY ON, FOLLOWED BY 2 WEEK OFF SCHEDULE
     Dates: start: 20120917

REACTIONS (7)
  - Pain in extremity [Not Recovered/Not Resolved]
  - Osteoarthritis [Unknown]
  - Dyspepsia [Unknown]
  - Gastrooesophageal reflux disease [Unknown]
  - Fatigue [Unknown]
  - Blood pressure increased [Not Recovered/Not Resolved]
  - Ingrowing nail [Not Recovered/Not Resolved]
